FAERS Safety Report 15269251 (Version 1)
Quarter: 2018Q3

REPORT INFORMATION
  Report Type: Report from Study
  Country: DE (occurrence: DE)
  Receive Date: 20180813
  Receipt Date: 20180813
  Transmission Date: 20181010
  Serious: Yes (Death, Disabling, Congenital Anomaly, Other)
  Sender: FDA-Public Use
  Company Number: DE-PAN-2018-000425

PATIENT

DRUGS (15)
  1. PANTOPRAZOLE SODIUM. [Suspect]
     Active Substance: PANTOPRAZOLE SODIUM
     Indication: EXPOSURE DURING PREGNANCY
  2. DIPYRONE [Suspect]
     Active Substance: DIPYRONE
     Indication: EXPOSURE DURING PREGNANCY
  3. SALBUTAMOL SULFATE [Suspect]
     Active Substance: ALBUTEROL SULFATE
     Indication: EXPOSURE DURING PREGNANCY
  4. PREDNISOLONE. [Suspect]
     Active Substance: PREDNISOLONE
     Indication: EXPOSURE DURING PREGNANCY
  5. TACROLIMUS. [Suspect]
     Active Substance: TACROLIMUS
     Indication: EXPOSURE DURING PREGNANCY
  6. RAMIPRIL. [Suspect]
     Active Substance: RAMIPRIL
     Indication: EXPOSURE DURING PREGNANCY
  7. NICOTINE. [Suspect]
     Active Substance: NICOTINE
     Indication: EXPOSURE DURING PREGNANCY
  8. TORASEMIDE [Suspect]
     Active Substance: TORSEMIDE
     Indication: EXPOSURE DURING PREGNANCY
  9. ALISKIREN [Suspect]
     Active Substance: ALISKIREN
     Indication: EXPOSURE DURING PREGNANCY
  10. HEPARIN [Suspect]
     Active Substance: HEPARIN SODIUM
     Indication: EXPOSURE DURING PREGNANCY
  11. EZETIMIBE. [Suspect]
     Active Substance: EZETIMIBE
     Indication: EXPOSURE DURING PREGNANCY
  12. HYDROXYCHLOROQUINE SULFATE. [Suspect]
     Active Substance: HYDROXYCHLOROQUINE SULFATE
     Indication: EXPOSURE DURING PREGNANCY
  13. SIMVASTATIN. [Suspect]
     Active Substance: SIMVASTATIN
     Indication: EXPOSURE DURING PREGNANCY
  14. RIVAROXABAN [Suspect]
     Active Substance: RIVAROXABAN
     Indication: EXPOSURE DURING PREGNANCY
  15. ACETYLSALICYLIC ACID [Suspect]
     Active Substance: ASPIRIN
     Indication: EXPOSURE DURING PREGNANCY

REACTIONS (4)
  - Congenital cardiovascular anomaly [Fatal]
  - Truncus arteriosus persistent [Fatal]
  - Ventricular septal defect [Fatal]
  - Foetal exposure during pregnancy [Fatal]
